FAERS Safety Report 17030833 (Version 4)
Quarter: 2021Q2

REPORT INFORMATION
  Report Type: Report from Study
  Country: US (occurrence: US)
  Receive Date: 20191114
  Receipt Date: 20210507
  Transmission Date: 20210716
  Serious: Yes (Hospitalization, Other)
  Sender: FDA-Public Use
  Company Number: NVSC2019US035116

PATIENT
  Age: 56 Year
  Sex: Male

DRUGS (3)
  1. ENTRESTO [Suspect]
     Active Substance: SACUBITRIL\VALSARTAN
     Dosage: 200 MG (97/103)
     Route: 065
     Dates: start: 201712
  2. ENTRESTO [Suspect]
     Active Substance: SACUBITRIL\VALSARTAN
     Indication: CARDIAC FAILURE
     Dosage: 200 MG (97/103 MG)
     Route: 048
     Dates: start: 20171101
  3. ENTRESTO [Suspect]
     Active Substance: SACUBITRIL\VALSARTAN
     Dosage: 100 MG (49/51 MG)
     Route: 065

REACTIONS (12)
  - Ejection fraction decreased [Recovering/Resolving]
  - Cardiac failure chronic [Unknown]
  - Dyspnoea [Not Recovered/Not Resolved]
  - Sleep apnoea syndrome [Unknown]
  - Intra-abdominal fluid collection [Not Recovered/Not Resolved]
  - Fatigue [Unknown]
  - Hypotension [Unknown]
  - Fluid retention [Unknown]
  - Pulmonary oedema [Unknown]
  - Weight increased [Not Recovered/Not Resolved]
  - Bundle branch block [Recovering/Resolving]
  - Gait disturbance [Unknown]

NARRATIVE: CASE EVENT DATE: 20190604
